FAERS Safety Report 13597456 (Version 2)
Quarter: 2017Q3

REPORT INFORMATION
  Report Type: Spontaneous
  Country: US (occurrence: US)
  Receive Date: 20170531
  Receipt Date: 20170725
  Transmission Date: 20171127
  Serious: No
  Sender: FDA-Public Use
  Company Number: US-JNJFOC-20170315635

PATIENT
  Sex: Female
  Weight: 88.45 kg

DRUGS (18)
  1. FISH OIL [Concomitant]
     Active Substance: FISH OIL
     Indication: BLOOD CHOLESTEROL INCREASED
     Dosage: 3 DAYS
     Route: 065
     Dates: start: 2009
  2. AXERT [Suspect]
     Active Substance: ALMOTRIPTAN MALATE
     Indication: MIGRAINE
     Dosage: IF NEEDED, SINE AN UNSPECIFIED DATE IN 2002 TO 2003
     Route: 048
  3. LYRICA [Concomitant]
     Active Substance: PREGABALIN
     Indication: FIBROMYALGIA
     Route: 065
  4. EFFEXOR [Concomitant]
     Active Substance: VENLAFAXINE HYDROCHLORIDE
     Indication: DEPRESSION
     Route: 065
     Dates: start: 2010
  5. FLUCONAZOLE. [Concomitant]
     Active Substance: FLUCONAZOLE
     Indication: FUNGAL SKIN INFECTION
     Dosage: 3 DAYS
     Route: 065
     Dates: start: 2011
  6. LISINOPRIL. [Concomitant]
     Active Substance: LISINOPRIL
     Indication: HYPERTENSION
     Dosage: 3 DAYS
     Route: 065
     Dates: start: 1990
  7. TORADOL [Concomitant]
     Active Substance: KETOROLAC TROMETHAMINE
     Indication: MIGRAINE
     Dosage: 3 DAYS
     Route: 065
     Dates: start: 1990
  8. BUPROPION HCL [Concomitant]
     Active Substance: BUPROPION HYDROCHLORIDE
     Indication: DEPRESSION
     Route: 065
     Dates: start: 2012
  9. CLONAZEPAM. [Concomitant]
     Active Substance: CLONAZEPAM
     Indication: ANXIETY
     Route: 065
     Dates: start: 2001
  10. METFORMIN [Concomitant]
     Active Substance: METFORMIN HYDROCHLORIDE
     Indication: DIABETES MELLITUS
     Dosage: 3 DAYS
     Route: 065
     Dates: start: 2014
  11. TRAZODONE [Concomitant]
     Active Substance: TRAZODONE HYDROCHLORIDE
     Indication: SLEEP DISORDER
     Dosage: 3 DAYS
     Route: 065
     Dates: start: 1990
  12. HYDROCHLOROTHIAZIDE. [Concomitant]
     Active Substance: HYDROCHLOROTHIAZIDE
     Indication: HYPERTENSION
     Dosage: 3 DAYS
     Route: 065
     Dates: start: 2016
  13. PRAVASTATIN. [Concomitant]
     Active Substance: PRAVASTATIN
     Indication: BLOOD CHOLESTEROL INCREASED
     Dosage: 3 DAYS
     Route: 065
     Dates: start: 1995
  14. CONCERTA [Concomitant]
     Active Substance: METHYLPHENIDATE HYDROCHLORIDE
     Indication: ATTENTION DEFICIT/HYPERACTIVITY DISORDER
     Route: 065
     Dates: start: 2013
  15. BACLOFEN. [Concomitant]
     Active Substance: BACLOFEN
     Indication: MUSCLE RELAXANT THERAPY
     Route: 065
  16. COMPAZINE [Concomitant]
     Active Substance: PROCHLORPERAZINE MALEATE
     Indication: NAUSEA
     Route: 065
     Dates: start: 2001
  17. FLONASE [Concomitant]
     Active Substance: FLUTICASONE PROPIONATE
     Indication: SINUS HEADACHE
     Route: 065
  18. IBUPROFEN. [Concomitant]
     Active Substance: IBUPROFEN
     Indication: MIGRAINE
     Dosage: 3 DAYS
     Route: 065
     Dates: start: 2016

REACTIONS (1)
  - Expired product administered [Unknown]
